FAERS Safety Report 7589840-8 (Version None)
Quarter: 2011Q2

REPORT INFORMATION
  Report Type: 
  Country: None (occurrence: None)
  Receive Date: 20110627
  Receipt Date: 20110616
  Transmission Date: 20111010
  Serious: Yes (Death, Hospitalization)
  Sender: FDA-Public Use
  Company Number: 118542

PATIENT
  Age: 17 Year
  Sex: Male

DRUGS (1)
  1. AMIKACIN SULFATE [Suspect]

REACTIONS (19)
  - GENERAL PHYSICAL HEALTH DETERIORATION [None]
  - EAR PAIN [None]
  - HAEMOPTYSIS [None]
  - EXOPHTHALMOS [None]
  - AMAUROSIS [None]
  - DYSARTHRIA [None]
  - ENCEPHALITIS BRAIN STEM [None]
  - SCEDOSPORIUM INFECTION [None]
  - FEBRILE NEUTROPENIA [None]
  - RENAL FAILURE ACUTE [None]
  - TONSILLITIS [None]
  - OPTIC NERVE DISORDER [None]
  - PERITONSILLAR ABSCESS [None]
  - HEADACHE [None]
  - PERIORBITAL OEDEMA [None]
  - PNEUMONIA FUNGAL [None]
  - ACUTE RESPIRATORY FAILURE [None]
  - SINUSITIS [None]
  - HEMIPARESIS [None]
